FAERS Safety Report 8048730-7 (Version None)
Quarter: 2012Q1

REPORT INFORMATION
  Report Type: 
  Country: None (occurrence: None)
  Receive Date: 20120117
  Receipt Date: 20120109
  Transmission Date: 20120608
  Serious: Yes (Hospitalization, Other)
  Sender: FDA-Public Use
  Company Number: US-JNJFOC-20111204655

PATIENT
  Sex: Male
  Weight: 89.36 kg

DRUGS (2)
  1. REMICADE [Suspect]
     Indication: CROHN'S DISEASE
     Route: 042
     Dates: start: 20110601, end: 20111101
  2. SYNTHROID [Concomitant]
     Indication: THYROID DISORDER
     Dosage: 0.137 MCG
     Route: 048
     Dates: start: 19960101

REACTIONS (5)
  - ULCER [None]
  - HYPOTENSION [None]
  - PULMONARY EMBOLISM [None]
  - HISTOPLASMOSIS [None]
  - THROMBOSIS [None]
